FAERS Safety Report 4460845-9 (Version None)
Quarter: 2004Q3

REPORT INFORMATION
  Report Type: 
  Country: None (occurrence: None)
  Receive Date: 20040928
  Receipt Date: 20031114
  Transmission Date: 20050211
  Serious: No
  Sender: FDA-Public Use
  Company Number: US-GLAXOSMITHKLINE-A0440274A

PATIENT
  Age: 89 Year
  Sex: Male
  Weight: 100 kg

DRUGS (3)
  1. ADVAIR DISKUS 100/50 [Suspect]
     Route: 055
     Dates: start: 20021101
  2. ALBUTEROL [Concomitant]
     Indication: WHEEZING
     Route: 055
  3. DAILY BENEFITS-DIETARY SUPPLEMENTS [Concomitant]
     Route: 065

REACTIONS (2)
  - EAR PAIN [None]
  - EYE PAIN [None]
